FAERS Safety Report 5513232-6 (Version None)
Quarter: 2007Q4

REPORT INFORMATION
  Report Type: 
  Country: None (occurrence: None)
  Receive Date: 20071112
  Receipt Date: 20071029
  Transmission Date: 20080405
  Serious: Yes (Hospitalization, Other)
  Sender: FDA-Public Use
  Company Number: FR-RANBAXY-2007US-11176

PATIENT

DRUGS (1)
  1. MINOCYCLINE HYDROCHLORIDE [Suspect]
     Indication: ACNE
     Dosage: 100 MG, QD
     Route: 065

REACTIONS (9)
  - ACUTE RESPIRATORY DISTRESS SYNDROME [None]
  - AGGRESSION [None]
  - DRUG RASH WITH EOSINOPHILIA AND SYSTEMIC SYMPTOMS [None]
  - EOSINOPHILIA [None]
  - HEPATOMEGALY [None]
  - HYPOXIA [None]
  - LYMPHADENOPATHY [None]
  - PYREXIA [None]
  - SPLENOMEGALY [None]
